FAERS Safety Report 6666755-0 (Version None)
Quarter: 2010Q2

REPORT INFORMATION
  Report Type: 
  Country: None (occurrence: None)
  Receive Date: 20100401
  Receipt Date: 20100401
  Transmission Date: 20101027
  Serious: No
  Sender: FDA-Public Use
  Company Number: None

PATIENT
  Sex: Female
  Weight: 63.5036 kg

DRUGS (1)
  1. PARAGARD T 380A [Suspect]

REACTIONS (2)
  - ABDOMINAL PAIN LOWER [None]
  - ECTOPIC PREGNANCY [None]
